FAERS Safety Report 7905514-5 (Version None)
Quarter: 2011Q4

REPORT INFORMATION
  Report Type: 
  Country: None (occurrence: None)
  Receive Date: 20111110
  Receipt Date: 20111107
  Transmission Date: 20120403
  Serious: No
  Sender: FDA-Public Use
  Company Number: US-BIOGENIDEC-2011BI024302

PATIENT
  Age: 37 Year
  Sex: Male

DRUGS (9)
  1. TYSABRI [Suspect]
     Indication: MULTIPLE SCLEROSIS
     Route: 042
     Dates: start: 20090430, end: 20110602
  2. ATENOLOL [Concomitant]
     Route: 048
  3. VITAMIN D [Concomitant]
     Route: 048
  4. NUVIGIL [Concomitant]
     Route: 048
     Dates: start: 20110502
  5. LOTREL [Concomitant]
     Route: 048
     Dates: start: 20091022
  6. EFFEXOR XR [Concomitant]
     Route: 048
     Dates: start: 20091022
  7. NAPROXEN (ALEVE) [Concomitant]
     Indication: MUSCULOSKELETAL PAIN
     Route: 048
  8. MULTI-VITAMINS [Concomitant]
     Route: 048
  9. ASCORBIC ACID [Concomitant]
     Route: 048
     Dates: start: 20091022

REACTIONS (2)
  - MOLE EXCISION [None]
  - DRUG INEFFECTIVE [None]
